FAERS Safety Report 4695507-6 (Version None)
Quarter: 2005Q2

REPORT INFORMATION
  Report Type: 
  Country: None (occurrence: None)
  Receive Date: 20050620
  Receipt Date: 20050620
  Transmission Date: 20051028
  Serious: Yes (Hospitalization)
  Sender: FDA-Public Use
  Company Number: None

PATIENT
  Sex: Female

DRUGS (2)
  1. DEPODUR [Suspect]
     Indication: KNEE ARTHROPLASTY
     Dosage: 15 MG PMCE EPIDURAL
     Route: 008
     Dates: start: 20050503, end: 20050503
  2. DEPODUR [Suspect]
     Indication: POSTOPERATIVE ANALGESIA
     Dosage: 15 MG PMCE EPIDURAL
     Route: 008
     Dates: start: 20050503, end: 20050503

REACTIONS (6)
  - DRUG ADMINISTRATION ERROR [None]
  - DRUG INEFFECTIVE [None]
  - LETHARGY [None]
  - NUCLEAR MAGNETIC RESONANCE IMAGING ABNORMAL [None]
  - POST PROCEDURAL COMPLICATION [None]
  - RESPIRATORY DISTRESS [None]
